FAERS Safety Report 13562229 (Version 3)
Quarter: 2017Q2

REPORT INFORMATION
  Report Type: Spontaneous
  Country: JP (occurrence: JP)
  Receive Date: 20170519
  Receipt Date: 20170619
  Transmission Date: 20170830
  Serious: Yes (Life-Threatening, Hospitalization, Other)
  Sender: FDA-Public Use
  Company Number: JP-009507513-1705JPN001056J

PATIENT
  Age: 86 Year
  Sex: Female
  Weight: 57 kg

DRUGS (11)
  1. MAGMITT [Concomitant]
     Active Substance: MAGNESIUM OXIDE
     Indication: CONSTIPATION
     Dosage: 250 MG, QD
     Route: 048
  2. ERELSA TABLETS 50MG [Suspect]
     Active Substance: ELBASVIR
     Dosage: 50 MG, QD
     Route: 048
     Dates: start: 20170513
  3. GRAZYNA TABLETS 50MG [Suspect]
     Active Substance: GRAZOPREVIR
     Dosage: 100 MG, QD
     Route: 048
     Dates: start: 20170513
  4. INDERAL [Concomitant]
     Active Substance: PROPRANOLOL HYDROCHLORIDE
     Indication: HYPERTENSION
     Dosage: 10 MG, TID
     Route: 048
     Dates: end: 20170511
  5. SENNA [Concomitant]
     Active Substance: SENNA LEAF\SENNOSIDES\SENNOSIDES A AND B
     Indication: CONSTIPATION
     Dosage: 80 MG, QD
     Route: 048
  6. ERELSA TABLETS 50MG [Suspect]
     Active Substance: ELBASVIR
     Indication: HEPATITIS C
     Dosage: 50 MG, QD
     Route: 048
     Dates: start: 20170411, end: 20170511
  7. BROTIZOLAM OD [Concomitant]
     Indication: INSOMNIA
     Dosage: 0.25 MG, QD
     Route: 048
  8. FAMOTIDINE. [Concomitant]
     Active Substance: FAMOTIDINE
     Indication: GASTRITIS
     Dosage: 10 MG, BID
     Route: 048
  9. GRAZYNA TABLETS 50MG [Suspect]
     Active Substance: GRAZOPREVIR
     Indication: HEPATITIS C
     Dosage: 100 MG, QD
     Route: 048
     Dates: start: 20170411, end: 20170511
  10. AMLODIPINE [Concomitant]
     Active Substance: AMLODIPINE BESYLATE
     Indication: HYPERTENSION
     Dosage: 5 MG, BID
     Route: 048
     Dates: start: 201101
  11. TEPRENONE [Concomitant]
     Active Substance: TEPRENONE
     Indication: GASTRITIS
     Dosage: 50 MG, TID
     Route: 048

REACTIONS (2)
  - Sinus node dysfunction [Unknown]
  - Bradycardia [Recovered/Resolved]

NARRATIVE: CASE EVENT DATE: 20170511
